FAERS Safety Report 5170331-9 (Version None)
Quarter: 2006Q4

REPORT INFORMATION
  Report Type: 
  Country: None (occurrence: None)
  Receive Date: 20061204
  Receipt Date: 20061124
  Transmission Date: 20070319
  Serious: Yes (Death, Hospitalization, Other)
  Sender: FDA-Public Use
  Company Number: NO-2006-036705

PATIENT
  Age: 75 Year
  Sex: Male

DRUGS (2)
  1. SOTALOL HYDROCHLORIDE [Suspect]
     Dates: start: 20061012
  2. ISOPTIN SR [Suspect]
     Indication: TACHYCARDIA
     Dosage: 240 MG IN THE AM, 120 MG IN PM
     Dates: start: 20060928

REACTIONS (5)
  - CARDIOMEGALY [None]
  - DRUG INTERACTION [None]
  - FRACTURE [None]
  - PERICARDIAL HAEMORRHAGE [None]
  - PLEURAL EFFUSION [None]
